FAERS Safety Report 4444882-6 (Version None)
Quarter: 2004Q3

REPORT INFORMATION
  Report Type: 
  Country: None (occurrence: None)
  Receive Date: 20040909
  Receipt Date: 20040907
  Transmission Date: 20050211
  Serious: Yes (Hospitalization)
  Sender: FDA-Public Use
  Company Number: 88

PATIENT
  Age: 66 Year
  Sex: Male

DRUGS (6)
  1. MELPHALAN [Suspect]
     Indication: MULTIPLE MYELOMA
     Route: 042
     Dates: start: 20040722
  2. THALIDOMIDE [Suspect]
     Route: 048
  3. ATIVAN [Concomitant]
  4. FLUMAZENIL [Concomitant]
  5. OXYCONTIN [Concomitant]
  6. BORTEZOMIB [Concomitant]

REACTIONS (13)
  - BACTERAEMIA [None]
  - CARDIOVASCULAR DECONDITIONING [None]
  - DEHYDRATION [None]
  - DIARRHOEA [None]
  - FATIGUE [None]
  - FEBRILE NEUTROPENIA [None]
  - ISCHAEMIC HEPATITIS [None]
  - LIVER DISORDER [None]
  - OVERDOSE [None]
  - RENAL TUBULAR NECROSIS [None]
  - SOMNOLENCE [None]
  - STAPHYLOCOCCAL BACTERAEMIA [None]
  - TACHYPNOEA [None]
